FAERS Safety Report 25010417 (Version 1)
Quarter: 2025Q1

REPORT INFORMATION
  Report Type: Spontaneous
  Country: ZA (occurrence: ZA)
  Receive Date: 20250225
  Receipt Date: 20250225
  Transmission Date: 20250409
  Serious: Yes (Hospitalization, Other)
  Sender: PFIZER
  Company Number: ZA-PFIZER INC-PV202500022366

PATIENT
  Age: 28 Year
  Sex: Female
  Weight: 79.5 kg

DRUGS (2)
  1. SULFASALAZINE [Suspect]
     Active Substance: SULFASALAZINE
     Dosage: 1 G, 2X/DAY
     Dates: start: 202311
  2. CHLOROQUINE [Suspect]
     Active Substance: CHLOROQUINE
     Dosage: 15 MG, WEEKLY
     Dates: start: 202311

REACTIONS (5)
  - Polyarthritis [Unknown]
  - Arthritis reactive [Unknown]
  - Gastroenteritis [Unknown]
  - Platelet count increased [Unknown]
  - Condition aggravated [Unknown]

NARRATIVE: CASE EVENT DATE: 20240213
